FAERS Safety Report 4788940-5 (Version None)
Quarter: 2005Q4

REPORT INFORMATION
  Report Type: 
  Country: None (occurrence: None)
  Receive Date: 20051004
  Receipt Date: 20050923
  Transmission Date: 20060501
  Serious: Yes (Hospitalization, Other)
  Sender: FDA-Public Use
  Company Number: 2005133780

PATIENT
  Age: 60 Year
  Sex: Female

DRUGS (2)
  1. XANAX [Suspect]
     Indication: ANXIETY
     Dosage: ORAL CONTRACEPTIVE NOS (ORAL CONTRACEPTIVE NOS)
     Route: 048
  2. ORAL CONTRACEPTIVE NOS (ORAL CONTRACEPTIVE NOS) [Suspect]
     Indication: ILL-DEFINED DISORDER

REACTIONS (10)
  - DEPENDENCE [None]
  - DRUG INTOLERANCE [None]
  - FEELING ABNORMAL [None]
  - HEADACHE [None]
  - HEPATIC NEOPLASM [None]
  - MENOPAUSE [None]
  - NERVOUSNESS [None]
  - PANIC ATTACK [None]
  - TREMOR [None]
  - TUMOUR HAEMORRHAGE [None]
